FAERS Safety Report 4929198-3 (Version None)
Quarter: 2006Q1

REPORT INFORMATION
  Report Type: 
  Country: None (occurrence: None)
  Receive Date: 20060301
  Receipt Date: 20030605
  Transmission Date: 20060701
  Serious: Yes (Hospitalization, Other)
  Sender: FDA-Public Use
  Company Number: US-MERCK-0306USA00939

PATIENT
  Age: 40 Year
  Sex: Female
  Weight: 126 kg

DRUGS (11)
  1. RISPERDAL [Concomitant]
     Route: 065
  2. PROZAC [Concomitant]
     Route: 065
  3. ELAVIL [Concomitant]
     Route: 048
  4. EFFEXOR [Concomitant]
     Route: 065
  5. EFFEXOR [Concomitant]
     Route: 065
  6. GLUCOPHAGE [Concomitant]
     Route: 065
  7. VIOXX [Suspect]
     Indication: ARTHRALGIA
     Route: 048
     Dates: start: 20000508
  8. VIOXX [Suspect]
     Route: 048
     Dates: start: 20010111
  9. VIOXX [Suspect]
     Route: 048
     Dates: start: 20020809
  10. VIOXX [Suspect]
     Route: 048
     Dates: start: 20000508
  11. COUMADIN [Concomitant]
     Route: 065

REACTIONS (58)
  - ABDOMINAL PAIN [None]
  - ABDOMINAL WALL ABSCESS [None]
  - ANAEMIA [None]
  - ANGINA PECTORIS [None]
  - ANXIETY [None]
  - BACK PAIN [None]
  - BLOOD GLUCOSE INCREASED [None]
  - BLOOD PRESSURE INCREASED [None]
  - CARDIOMEGALY [None]
  - CELLULITIS [None]
  - CEREBROVASCULAR ACCIDENT [None]
  - CONJUNCTIVITIS ALLERGIC [None]
  - CONVULSION [None]
  - DEEP VEIN THROMBOSIS [None]
  - DIABETES MELLITUS NON-INSULIN-DEPENDENT [None]
  - DIZZINESS [None]
  - DYSPNOEA [None]
  - EAR PAIN [None]
  - FALL [None]
  - FATIGUE [None]
  - FEAR [None]
  - GOITRE [None]
  - HALLUCINATION [None]
  - HEADACHE [None]
  - HEPATIC STEATOSIS [None]
  - HERNIA [None]
  - HERPES ZOSTER [None]
  - HYPOGLYCAEMIA [None]
  - IMPAIRED GASTRIC EMPTYING [None]
  - INJECTION SITE HAEMORRHAGE [None]
  - IRRITABILITY [None]
  - LIPOMATOSIS [None]
  - MAJOR DEPRESSION [None]
  - MASTOIDITIS [None]
  - MIGRAINE [None]
  - MOOD SWINGS [None]
  - OEDEMA PERIPHERAL [None]
  - OSTEOARTHRITIS [None]
  - OVERDOSE [None]
  - PAIN IN EXTREMITY [None]
  - PERIPHERAL SENSORY NEUROPATHY [None]
  - PHLEBITIS [None]
  - PROTEIN C DEFICIENCY [None]
  - RASH [None]
  - RETINOPATHY [None]
  - SINUSITIS [None]
  - STRABISMUS [None]
  - SUBCUTANEOUS ABSCESS [None]
  - SUICIDAL IDEATION [None]
  - SYNCOPE [None]
  - TACHYCARDIA [None]
  - THINKING ABNORMAL [None]
  - THROMBOPHLEBITIS SUPERFICIAL [None]
  - TRANSIENT ISCHAEMIC ATTACK [None]
  - URINARY TRACT INFECTION [None]
  - VAGINAL HAEMORRHAGE [None]
  - VERTIGO [None]
  - VOMITING [None]
